FAERS Safety Report 20994926 (Version 1)
Quarter: 2022Q2

REPORT INFORMATION
  Report Type: Report from Study
  Country: US (occurrence: US)
  Receive Date: 20220622
  Receipt Date: 20220622
  Transmission Date: 20220720
  Serious: Yes (Other)
  Sender: FDA-Public Use
  Company Number: US-BAYER-2022A086742

PATIENT
  Age: 64 Year
  Sex: Female

DRUGS (1)
  1. STIVARGA [Suspect]
     Active Substance: REGORAFENIB
     Dosage: 160 MG, QD FOR 21 DAYS ON AND 7 DAYS OFF
     Route: 048
     Dates: start: 20220608

REACTIONS (2)
  - Cellulitis [Unknown]
  - Fatigue [Unknown]
